FAERS Safety Report 6848862-2 (Version None)
Quarter: 2010Q3

REPORT INFORMATION
  Report Type: 
  Country: None (occurrence: None)
  Receive Date: 20100716
  Receipt Date: 20071029
  Transmission Date: 20110219
  Serious: No
  Sender: FDA-Public Use
  Company Number: US-PFIZER INC-2007075646

PATIENT
  Age: 65 Year
  Sex: Female
  Weight: 54.5 kg

DRUGS (7)
  1. CHANTIX [Suspect]
     Indication: SMOKING CESSATION THERAPY
     Route: 048
     Dates: start: 20070817
  2. MS CONTIN [Concomitant]
     Indication: PAIN
  3. DILANTIN [Concomitant]
     Indication: CONVULSION
  4. DEPAKOTE [Concomitant]
     Indication: CONVULSION
  5. TIZANIDINE HCL [Concomitant]
     Indication: MUSCLE SPASMS
  6. SEROQUEL [Concomitant]
  7. CARTIA XT [Concomitant]
     Indication: HYPERTENSION

REACTIONS (2)
  - NAUSEA [None]
  - VOMITING [None]
